APPROVED DRUG PRODUCT: AZATHIOPRINE
Active Ingredient: AZATHIOPRINE
Strength: 50MG
Dosage Form/Route: TABLET;ORAL
Application: A074069 | Product #001 | TE Code: AB
Applicant: AMNEAL PHARMACEUTICALS LLC
Approved: Feb 16, 1996 | RLD: No | RS: No | Type: RX